FAERS Safety Report 10276052 (Version 1)
Quarter: 2014Q3

REPORT INFORMATION
  Report Type: Spontaneous
  Country: US (occurrence: None)
  Receive Date: 20140701
  Receipt Date: 20140701
  Transmission Date: 20150326
  Serious: Yes (Hospitalization)
  Sender: FDA-Public Use
  Company Number: None

PATIENT
  Age: 66 Year
  Sex: Male
  Weight: 91.9 kg

DRUGS (1)
  1. TRAZODONE [Suspect]
     Active Substance: TRAZODONE HYDROCHLORIDE
     Indication: INSOMNIA
     Route: 048
     Dates: start: 20140610, end: 20140610

REACTIONS (4)
  - Overdose [None]
  - Electrocardiogram QT prolonged [None]
  - Sedation [None]
  - Bradycardia [None]

NARRATIVE: CASE EVENT DATE: 20140610
